FAERS Safety Report 13543968 (Version 1)
Quarter: 2017Q2

REPORT INFORMATION
  Report Type: Spontaneous
  Country: US (occurrence: US)
  Receive Date: 20170515
  Receipt Date: 20170515
  Transmission Date: 20170830
  Serious: No
  Sender: FDA-Public Use
  Company Number: US-ASTRAZENECA-2017SE47280

PATIENT
  Age: 92 Year
  Sex: Female

DRUGS (1)
  1. PRILOSEC OTC [Suspect]
     Active Substance: OMEPRAZOLE MAGNESIUM
     Route: 048

REACTIONS (6)
  - Cough [Recovered/Resolved]
  - Intentional product misuse [Unknown]
  - Oropharyngeal pain [Recovered/Resolved]
  - Gastrooesophageal reflux disease [Recovering/Resolving]
  - Dyspepsia [Recovered/Resolved]
  - Productive cough [Recovered/Resolved]

NARRATIVE: CASE EVENT DATE: 20170412
